FAERS Safety Report 8561270-1 (Version None)
Quarter: 2012Q3

REPORT INFORMATION
  Report Type: 
  Country: None (occurrence: None)
  Receive Date: 20120802
  Receipt Date: 20120726
  Transmission Date: 20120928
  Serious: No
  Sender: FDA-Public Use
  Company Number: US-B.I. PHARMACEUTICALS,INC./RIDGEFIELD-2012-BP-17049BP

PATIENT
  Sex: Male

DRUGS (17)
  1. SYMBICORT [Concomitant]
     Indication: SLEEP APNOEA SYNDROME
     Dosage: 2 PUF
     Route: 055
  2. ASPIRIN [Concomitant]
     Indication: PROPHYLAXIS
     Dosage: 325 MG
     Route: 048
  3. PLAVIX [Concomitant]
     Indication: PROPHYLAXIS
     Dosage: 75 MG
     Route: 048
  4. VYTORIN [Concomitant]
     Indication: BLOOD CHOLESTEROL INCREASED
     Route: 048
  5. BACLOFEN [Concomitant]
     Indication: HICCUPS
     Dosage: 30 MG
     Route: 048
  6. BACLOFEN [Concomitant]
     Dosage: 15 MG
     Route: 048
  7. TRADJENTA [Suspect]
     Indication: TYPE 1 DIABETES MELLITUS
     Dosage: 5 MG
     Route: 048
     Dates: start: 20120714, end: 20120723
  8. DILTIAZEM [Concomitant]
     Indication: HYPERTENSION
     Dosage: 360 MG
     Route: 048
  9. FUROSEMIDE [Concomitant]
     Indication: OEDEMA PERIPHERAL
     Dosage: 60 MG
     Route: 048
  10. MONOPRIL [Concomitant]
     Indication: HYPERTENSION
     Dosage: 40 MG
     Route: 048
  11. COLACE [Concomitant]
     Indication: CONSTIPATION
     Dosage: 400 MG
     Route: 048
  12. POTASSIUM [Concomitant]
     Indication: SUPPLEMENTATION THERAPY
     Dosage: 20 MEQ
     Route: 048
  13. DIAZEPAM [Concomitant]
     Indication: INTERVERTEBRAL DISC PROTRUSION
     Dosage: 15 MG
     Route: 048
  14. AMITIZA [Concomitant]
     Indication: CONSTIPATION
     Dosage: 48 MCG
     Route: 048
  15. NASONEX [Concomitant]
     Indication: SINUS CONGESTION
     Dosage: 2 PUF
     Route: 045
  16. MIRALAX [Concomitant]
     Indication: CONSTIPATION
     Route: 048
  17. RAPAFLO [Concomitant]
     Indication: PROSTATOMEGALY
     Dosage: 8 MG
     Route: 048

REACTIONS (7)
  - OEDEMA PERIPHERAL [None]
  - DIARRHOEA [None]
  - RHINORRHOEA [None]
  - URINE OUTPUT DECREASED [None]
  - FATIGUE [None]
  - DYSPNOEA [None]
  - HEADACHE [None]
